FAERS Safety Report 4970754-4 (Version None)
Quarter: 2006Q2

REPORT INFORMATION
  Report Type: 
  Country: None (occurrence: None)
  Receive Date: 20060411
  Receipt Date: 20060411
  Transmission Date: 20061013
  Serious: Yes (Life-Threatening, Hospitalization, Disabling, Other)
  Sender: FDA-Public Use
  Company Number: None

PATIENT
  Age: 58 Year
  Sex: Female
  Weight: 87.9978 kg

DRUGS (4)
  1. CORICIDIN D (CHLORPHENIRAMINE/PHENYLPROPANOLAMINE/ AS TABLETS [Suspect]
     Dosage: ORAL
     Route: 048
     Dates: start: 20010323, end: 20010326
  2. ZESTRIL [Concomitant]
  3. PRINIVIL [Concomitant]
  4. PREMARIN [Concomitant]

REACTIONS (15)
  - ANEURYSM RUPTURED [None]
  - ANOREXIA [None]
  - BRAIN OEDEMA [None]
  - CONVULSION [None]
  - DEEP VEIN THROMBOSIS [None]
  - DEPRESSION [None]
  - HAEMATOMA [None]
  - HAEMORRHAGE INTRACRANIAL [None]
  - HAEMORRHAGIC STROKE [None]
  - HEADACHE [None]
  - HEMIPLEGIA [None]
  - INTRACRANIAL ANEURYSM [None]
  - STAPHYLOCOCCAL INFECTION [None]
  - TRANSAMINASES INCREASED [None]
  - TREATMENT NONCOMPLIANCE [None]
